FAERS Safety Report 11114565 (Version 2)
Quarter: 2015Q3

REPORT INFORMATION
  Report Type: Spontaneous
  Country: JP (occurrence: JP)
  Receive Date: 20150515
  Receipt Date: 20150702
  Transmission Date: 20151125
  Serious: Yes (Hospitalization)
  Sender: FDA-Public Use
  Company Number: JP-ROCHE-1577925

PATIENT
  Age: 67 Year
  Sex: Female
  Weight: 50 kg

DRUGS (4)
  1. ROCEPHIN [Suspect]
     Active Substance: CEFTRIAXONE SODIUM
     Indication: PYELONEPHRITIS
     Dosage: OTHER PURPOSE: ASPIRATION PNEUMONIA AND CENTRAL VENOUS CATHETER STAPH INFECTION.
     Route: 041
     Dates: start: 20150330, end: 20150407
  2. CIPROXAN [Suspect]
     Active Substance: CIPROFLOXACIN
     Indication: DEVICE RELATED INFECTION
     Route: 041
     Dates: start: 20150327, end: 20150330
  3. VICCILLIN [Concomitant]
     Active Substance: AMPICILLIN
     Route: 065
     Dates: start: 20150407, end: 20150409
  4. ELNEOPA [Concomitant]
     Active Substance: UNSPECIFIED INGREDIENT
     Dosage: DOSAGE IS UNCERTAIN.?REPORTED AS ELNEOPA NO.2.
     Route: 065

REACTIONS (2)
  - Platelet count decreased [Recovered/Resolved]
  - Hepatic function abnormal [Recovered/Resolved]

NARRATIVE: CASE EVENT DATE: 20150407
